FAERS Safety Report 7936358-6 (Version None)
Quarter: 2011Q4

REPORT INFORMATION
  Report Type: 
  Country: None (occurrence: None)
  Receive Date: 20111123
  Receipt Date: 20111117
  Transmission Date: 20120403
  Serious: Yes (Disabling, Other)
  Sender: FDA-Public Use
  Company Number: US-US-EMD SERONO, INC.-7096899

PATIENT
  Sex: Female

DRUGS (2)
  1. REBIF [Suspect]
     Route: 058
     Dates: start: 20110601
  2. REBIF [Suspect]
     Indication: MULTIPLE SCLEROSIS
     Route: 058
     Dates: start: 20060324, end: 20110525

REACTIONS (7)
  - ANAPHYLACTIC REACTION [None]
  - CARDIAC PACEMAKER INSERTION [None]
  - PAIN [None]
  - CYSTITIS NONINFECTIVE [None]
  - FACIAL NEURALGIA [None]
  - APHASIA [None]
  - INFLUENZA LIKE ILLNESS [None]
